FAERS Safety Report 19573442 (Version 1)
Quarter: 2021Q3

REPORT INFORMATION
  Report Type: Report from Study
  Country: IT (occurrence: IT)
  Receive Date: 20210717
  Receipt Date: 20210717
  Transmission Date: 20211014
  Serious: Yes (Other)
  Sender: FDA-Public Use
  Company Number: IT-ACCORD-231916

PATIENT
  Age: 45 Year
  Sex: Female
  Weight: 78 kg

DRUGS (1)
  1. PACLITAXEL/PACLITAXEL LIPOSOME [Suspect]
     Active Substance: PACLITAXEL
     Indication: NEOPLASM
     Route: 041
     Dates: start: 20210510, end: 20210510

REACTIONS (3)
  - Malaise [Recovered/Resolved]
  - Back pain [Recovered/Resolved]
  - Oxygen saturation decreased [Recovered/Resolved]

NARRATIVE: CASE EVENT DATE: 20210510
